FAERS Safety Report 20261466 (Version 1)
Quarter: 2021Q4

REPORT INFORMATION
  Report Type: Spontaneous
  Country: US (occurrence: US)
  Receive Date: 20211231
  Receipt Date: 20211231
  Transmission Date: 20220304
  Serious: No
  Sender: FDA-Public Use
  Company Number: US-COOPERSURGICAL, INC.-US-2021CPS001422

PATIENT
  Age: 25 Year
  Sex: Female
  Weight: 38.549 kg

DRUGS (2)
  1. PARAGARD T 380A [Suspect]
     Active Substance: COPPER
     Indication: Contraception
     Dosage: UNK
     Route: 015
     Dates: start: 20190115
  2. ZYRTEC                             /00884302/ [Concomitant]
     Indication: Hypersensitivity
     Dosage: UNK, PRN
     Route: 065

REACTIONS (4)
  - Muscle spasms [Unknown]
  - Discomfort [Unknown]
  - Device expulsion [Not Recovered/Not Resolved]
  - Iron deficiency anaemia [Unknown]

NARRATIVE: CASE EVENT DATE: 20210401
